FAERS Safety Report 20306029 (Version 3)
Quarter: 2022Q1

REPORT INFORMATION
  Report Type: Spontaneous
  Country: CN (occurrence: CN)
  Receive Date: 20220106
  Receipt Date: 20220114
  Transmission Date: 20220424
  Serious: Yes (Life-Threatening)
  Sender: FDA-Public Use
  Company Number: CN-GE HEALTHCARE-2022CSU000024

PATIENT

DRUGS (5)
  1. OMNIPAQUE [Suspect]
     Active Substance: IOHEXOL
     Indication: Computerised tomogram coronary artery
     Dosage: 90 ML, SINGLE
     Route: 040
     Dates: start: 20211229, end: 20211229
  2. OMNIPAQUE [Suspect]
     Active Substance: IOHEXOL
     Indication: Coronary artery disease
  3. OMNIPAQUE [Suspect]
     Active Substance: IOHEXOL
     Indication: Hypertension
  4. NIFEDIPINE [Concomitant]
     Active Substance: NIFEDIPINE
  5. METOPROLOL [Concomitant]
     Active Substance: METOPROLOL

REACTIONS (8)
  - Feeling abnormal [Recovered/Resolved]
  - Conjunctival oedema [Recovered/Resolved]
  - Cyanosis [Recovered/Resolved]
  - Dyspnoea [Recovered/Resolved]
  - Hyperhidrosis [Recovered/Resolved]
  - Dizziness [Recovered/Resolved]
  - Feeling hot [Recovered/Resolved]
  - Cough [Recovered/Resolved]

NARRATIVE: CASE EVENT DATE: 20211229
